FAERS Safety Report 4586920-6 (Version None)
Quarter: 2005Q1

REPORT INFORMATION
  Report Type: 
  Country: None (occurrence: None)
  Receive Date: 20050215
  Receipt Date: 20050215
  Transmission Date: 20050727
  Serious: Yes (Hospitalization)
  Sender: FDA-Public Use
  Company Number: None

PATIENT
  Age: 49 Year
  Sex: Female
  Weight: 63.5036 kg

DRUGS (2)
  1. KEPPRA [Suspect]
     Dosage: 2 PILLS BID   ORAL
     Route: 048
     Dates: start: 20050125, end: 20050206
  2. LAMICTAL [Suspect]
     Dosage: 1 PILL BID     ORAL
     Route: 048

REACTIONS (6)
  - COGNITIVE DISORDER [None]
  - CONDITION AGGRAVATED [None]
  - CONVULSION [None]
  - DISORIENTATION [None]
  - DYSKINESIA [None]
  - SPEECH DISORDER [None]
